FAERS Safety Report 5155712-1 (Version None)
Quarter: 2006Q4

REPORT INFORMATION
  Report Type: 
  Country: None (occurrence: None)
  Receive Date: 20061114
  Receipt Date: 20061031
  Transmission Date: 20070319
  Serious: Yes (Hospitalization, Other)
  Sender: FDA-Public Use
  Company Number: 2005070310

PATIENT
  Sex: Male
  Weight: 49.8957 kg

DRUGS (16)
  1. NEURONTIN [Suspect]
     Indication: ARACHNOIDITIS
     Dosage: 4000 MG (800 MG, 5 IN 1 D)
     Dates: start: 19990101
  2. NEURONTIN [Suspect]
     Indication: CAUDA EQUINA SYNDROME
     Dosage: 4000 MG (800 MG, 5 IN 1 D)
     Dates: start: 19990101
  3. VIAGRA [Suspect]
     Dosage: (100 MG), ORAL
     Route: 048
  4. MORPHINE SULFATE [Suspect]
     Indication: PAIN
     Dosage: 60 MG (60 MG, 1 IN 1 D)
     Dates: start: 19990101
  5. MORPHINE [Suspect]
     Dosage: (FREQUENCY:  ONCE), INTRAVENOUS
     Route: 042
     Dates: start: 20000101, end: 20000101
  6. CARDIZEM [Concomitant]
  7. ATIVAN [Concomitant]
  8. LEVOTHYROXINE SODIUM [Concomitant]
  9. CATAFLAM (DICLOFENAC SODUIM) [Concomitant]
  10. ZANAFLEX [Concomitant]
  11. SOMA [Concomitant]
  12. MAGNESIUM (MAGNESIUM) [Concomitant]
  13. ALL OTHER THERAPEUTIC PRODUCTS (ALL OTHER THERAPEUTIC PRODUCTS) [Concomitant]
  14. BENADRYL [Concomitant]
  15. BENICAR [Concomitant]
  16. DURAGESIC-100 [Concomitant]

REACTIONS (10)
  - BRONCHITIS [None]
  - CONVULSION [None]
  - HYPERTENSION [None]
  - MOVEMENT DISORDER [None]
  - NASAL CONGESTION [None]
  - NEOPLASM [None]
  - PAIN IN EXTREMITY [None]
  - PNEUMONIA [None]
  - ROAD TRAFFIC ACCIDENT [None]
  - VISION BLURRED [None]
